FAERS Safety Report 8308829-4 (Version None)
Quarter: 2012Q2

REPORT INFORMATION
  Report Type: 
  Country: None (occurrence: None)
  Receive Date: 20120424
  Receipt Date: 20120413
  Transmission Date: 20120825
  Serious: Yes (Other)
  Sender: FDA-Public Use
  Company Number: KR-ACTELION-A-CH2012-64150

PATIENT
  Age: 47 Year
  Sex: Female
  Weight: 40 kg

DRUGS (3)
  1. TRACLEER [Suspect]
     Dosage: 62.5 MG, QD
     Route: 048
     Dates: start: 20110402, end: 20120408
  2. TRACLEER [Suspect]
     Dosage: 62.5 MG, BID
     Route: 048
  3. TRACLEER [Suspect]
     Indication: PULMONARY ARTERIAL HYPERTENSION
     Dosage: 62.5 MG, BID
     Route: 048
     Dates: start: 20110401

REACTIONS (3)
  - VAGINAL HAEMORRHAGE [None]
  - MENOPAUSE [None]
  - RECTAL HAEMORRHAGE [None]
